FAERS Safety Report 12843963 (Version 1)
Quarter: 2016Q4

REPORT INFORMATION
  Report Type: Spontaneous
  Country: TR (occurrence: TR)
  Receive Date: 20161013
  Receipt Date: 20161013
  Transmission Date: 20170207
  Serious: Yes (Death, Other)
  Sender: FDA-Public Use
  Company Number: TR-BIOVITRUM-2016TR0800

PATIENT
  Age: 10 Year
  Sex: Female

DRUGS (1)
  1. ORFADIN [Suspect]
     Active Substance: NITISINONE
     Indication: TYROSINAEMIA

REACTIONS (5)
  - Alpha 1 foetoprotein increased [Fatal]
  - Hepatic enzyme increased [Fatal]
  - Hepatocellular carcinoma [Fatal]
  - Blood bilirubin increased [Fatal]
  - Coagulopathy [Fatal]
